FAERS Safety Report 10144425 (Version 1)
Quarter: 2014Q2

REPORT INFORMATION
  Report Type: Spontaneous
  Country: IT (occurrence: IT)
  Receive Date: 20140430
  Receipt Date: 20140430
  Transmission Date: 20141212
  Serious: Yes (Hospitalization)
  Sender: FDA-Public Use
  Company Number: IT-MYLANLABS-2014S1009262

PATIENT
  Age: 67 Year
  Sex: Female

DRUGS (6)
  1. CITALOPRAM [Suspect]
     Indication: ANXIETY
     Dosage: 10 GTT TOTAL
     Route: 048
     Dates: start: 20140331, end: 20140331
  2. DELTACORTENE [Concomitant]
     Indication: RHEUMATOID ARTHRITIS
  3. METHOTREXATE [Concomitant]
     Indication: RHEUMATOID ARTHRITIS
  4. HYDROXYCHLOROQUINE SULFATE [Concomitant]
     Indication: RHEUMATOID ARTHRITIS
  5. ALENDRONIC ACID [Concomitant]
     Indication: RHEUMATOID ARTHRITIS
  6. ENTECAVIR [Concomitant]
     Indication: RHEUMATOID ARTHRITIS

REACTIONS (3)
  - Chest pain [Recovered/Resolved]
  - Hypokalaemia [Recovered/Resolved]
  - Troponin I increased [Recovered/Resolved]
